FAERS Safety Report 4359964-7 (Version None)
Quarter: 2004Q2

REPORT INFORMATION
  Report Type: 
  Country: None (occurrence: None)
  Receive Date: 20040513
  Receipt Date: 20040510
  Transmission Date: 20050107
  Serious: Yes (Death)
  Sender: FDA-Public Use
  Company Number: 2004UW03165

PATIENT
  Age: 39 Year
  Sex: Female
  Weight: 77.1115 kg

DRUGS (13)
  1. SEROQUEL [Suspect]
     Indication: DEPRESSION
     Dosage: 400 TO 600 MG
  2. KLONOPIN [Concomitant]
  3. LEXAPRO [Concomitant]
  4. THORAZINE [Concomitant]
  5. TRAZODONE HCL [Concomitant]
  6. AMBIEN [Concomitant]
  7. PROPOXYPHENE NAPSYLATE [Concomitant]
  8. SYNTHROID [Concomitant]
  9. ACETAMINOPHEN W/ CODEINE [Concomitant]
  10. CONTRACEPTIVE [Concomitant]
  11. PROTONIX [Concomitant]
  12. ANTABUSE [Concomitant]
  13. METOCLOPRAMIDE [Concomitant]

REACTIONS (8)
  - ABDOMINAL PAIN UPPER [None]
  - BLOOD ALCOHOL INCREASED [None]
  - COMA [None]
  - COMPLETED SUICIDE [None]
  - GASTROINTESTINAL HAEMORRHAGE [None]
  - MULTIPLE DRUG OVERDOSE [None]
  - SUDDEN DEATH [None]
  - TREATMENT NONCOMPLIANCE [None]
